FAERS Safety Report 4375923-2 (Version None)
Quarter: 2004Q2

REPORT INFORMATION
  Report Type: 
  Country: None (occurrence: None)
  Receive Date: 20040607
  Receipt Date: 20040521
  Transmission Date: 20050107
  Serious: Yes (Hospitalization)
  Sender: FDA-Public Use
  Company Number: GBR-2004-0001084

PATIENT
  Age: 57 Year
  Sex: Male

DRUGS (4)
  1. OXYCODONE HCL [Suspect]
     Indication: PAIN
  2. ACETAMINOPHEN [Suspect]
     Indication: PAIN
     Dosage: ORAL
     Route: 048
  3. CO-CODAMOL (CODEINE PHOSPHATE, PARACETAMOL) [Suspect]
     Indication: PAIN
  4. DIAMORPHINE (DIAMORPHINE) [Concomitant]

REACTIONS (3)
  - ANAPHYLACTOID REACTION [None]
  - ANGIONEUROTIC OEDEMA [None]
  - PAIN [None]
